FAERS Safety Report 5735669-2 (Version None)
Quarter: 2008Q2

REPORT INFORMATION
  Report Type: 
  Country: None (occurrence: None)
  Receive Date: 20080512
  Receipt Date: 20080430
  Transmission Date: 20081010
  Serious: Yes (Other)
  Sender: FDA-Public Use
  Company Number: US-PFIZER INC-2008038757

PATIENT
  Sex: Female
  Weight: 54.4 kg

DRUGS (2)
  1. GABAPENTIN [Suspect]
     Indication: HERPES ZOSTER
  2. LIDODERM [Concomitant]

REACTIONS (2)
  - DIZZINESS [None]
  - DYSSTASIA [None]
